FAERS Safety Report 6773559-7 (Version None)
Quarter: 2010Q2

REPORT INFORMATION
  Report Type: 
  Country: None (occurrence: None)
  Receive Date: 20100616
  Receipt Date: 20100610
  Transmission Date: 20101027
  Serious: Yes (Other)
  Sender: FDA-Public Use
  Company Number: GB-AMGEN-KDL414026

PATIENT
  Sex: Female

DRUGS (6)
  1. ARANESP [Suspect]
     Indication: RENAL FAILURE CHRONIC
     Route: 058
     Dates: start: 20090510, end: 20091103
  2. ARANESP [Suspect]
     Dates: start: 20100414
  3. RAMIPRIL [Concomitant]
     Route: 048
  4. DOXAZOSIN MESYLATE [Concomitant]
     Route: 048
  5. FERROUS SULFATE TAB [Concomitant]
     Route: 048
  6. CLONAZEPAM [Concomitant]
     Route: 048

REACTIONS (6)
  - BLOOD PRESSURE INCREASED [None]
  - CHRONIC OBSTRUCTIVE PULMONARY DISEASE [None]
  - HAEMOGLOBIN DECREASED [None]
  - HEADACHE [None]
  - RENAL IMPAIRMENT [None]
  - STRESS [None]
